FAERS Safety Report 5431465-4 (Version None)
Quarter: 2007Q3

REPORT INFORMATION
  Report Type: 
  Country: None (occurrence: None)
  Receive Date: 20070830
  Receipt Date: 20070702
  Transmission Date: 20080115
  Serious: No
  Sender: FDA-Public Use
  Company Number: A0661299A

PATIENT
  Age: 21 Year
  Sex: Female

DRUGS (4)
  1. WELLBUTRIN XL [Suspect]
     Indication: DEPRESSION
     Dosage: 450MG PER DAY
     Route: 048
     Dates: start: 20070101
  2. CYMBALTA [Concomitant]
  3. LUTERAN [Concomitant]
  4. ZOLOFT [Concomitant]

REACTIONS (1)
  - PARAESTHESIA [None]
